FAERS Safety Report 17013375 (Version 2)
Quarter: 2019Q4

REPORT INFORMATION
  Report Type: Report from Study
  Country: US (occurrence: US)
  Receive Date: 20191110
  Receipt Date: 20191120
  Transmission Date: 20200122
  Serious: Yes (Other)
  Sender: FDA-Public Use
  Company Number: NVSC2019US028082

PATIENT
  Sex: Male

DRUGS (1)
  1. TASIGNA [Suspect]
     Active Substance: NILOTINIB
     Indication: PRODUCT USED FOR UNKNOWN INDICATION
     Route: 065

REACTIONS (7)
  - Somnolence [Unknown]
  - Leukaemia [Unknown]
  - Hypertension [Unknown]
  - Glaucoma [Unknown]
  - Chronic obstructive pulmonary disease [Unknown]
  - Gout [Unknown]
  - Type 1 diabetes mellitus [Unknown]
